FAERS Safety Report 8294339-X (Version None)
Quarter: 2012Q2

REPORT INFORMATION
  Report Type: 
  Country: None (occurrence: None)
  Receive Date: 20120418
  Receipt Date: 20120411
  Transmission Date: 20120825
  Serious: Yes (Other)
  Sender: FDA-Public Use
  Company Number: US-BRISTOL-MYERS SQUIBB COMPANY-16515025

PATIENT
  Age: 61 Year
  Sex: Female

DRUGS (16)
  1. ASPIRIN [Concomitant]
     Dosage: 1TAB.
  2. GLIMEPIRIDE [Concomitant]
     Dosage: 1 TAB IN AM, 1 TAB BEFORE LAST MEAL
     Route: 048
  3. GABAPENTIN [Concomitant]
     Dosage: CAPSULE. AM, NOON AND BEDTIME.
     Route: 048
  4. GLUCOPHAGE [Suspect]
  5. HUMULIN R [Concomitant]
     Dosage: 1 DF: 100UNIT/ML SOLUTION, SIG:12 UNITS IN AM, 14 UNITS BEFORE LUNCH, 12 UNITS BEFORE LAT MEAL.
  6. JANUVIA [Concomitant]
     Dosage: 1 TAB IN AM.
     Route: 048
  7. GLIPIZIDE [Concomitant]
     Dosage: 1TAB IN NOON AND BEFORE LAST MEAL.
     Route: 048
  8. LORATADINE [Concomitant]
     Dosage: 1 TAB
     Route: 048
  9. IBUPROFEN [Suspect]
  10. TYLENOL ARTHRITIS [Concomitant]
     Dosage: 1TAB EXTENDED RELEASE.
     Route: 048
  11. MULTI-VITAMIN [Concomitant]
     Dosage: 1 TAB.
     Route: 048
  12. LIPITOR [Concomitant]
     Indication: BLOOD CHOLESTEROL
     Dosage: 1 TAB EVERY EVENING.
     Route: 048
  13. CIPROFLOXACIN HCL [Concomitant]
     Dosage: 1TAB
     Route: 048
  14. HYDROCHLOROTHIAZIDE [Concomitant]
     Dosage: 1 TAB IN AM.
  15. BENICAR [Concomitant]
     Indication: BLOOD PRESSURE
  16. FISH OIL [Concomitant]
     Dosage: CAPSULE
     Route: 048

REACTIONS (1)
  - RENAL DISORDER [None]
